FAERS Safety Report 15954140 (Version 2)
Quarter: 2019Q2

REPORT INFORMATION
  Report Type: Report from Study
  Country: US (occurrence: US)
  Receive Date: 20190212
  Receipt Date: 20190401
  Transmission Date: 20190711
  Serious: Yes (Hospitalization)
  Sender: FDA-Public Use
  Company Number: US-ACTELION-A-US2019-186114

PATIENT
  Sex: Male
  Weight: 7.26 kg

DRUGS (2)
  1. BOSENTAN TABLET 32 MG PED US [Suspect]
     Active Substance: BOSENTAN
     Indication: PULMONARY ARTERIAL HYPERTENSION
     Dosage: 15 MG, BID VIA NG TUBE
     Route: 049
  2. REVATIO [Concomitant]
     Active Substance: SILDENAFIL CITRATE

REACTIONS (4)
  - Hepatic enzyme increased [Unknown]
  - Renal disorder [Unknown]
  - Liver disorder [Unknown]
  - Pyrexia [Unknown]
